FAERS Safety Report 15634756 (Version 1)
Quarter: 2018Q4

REPORT INFORMATION
  Report Type: Report from Study
  Country: BR (occurrence: BR)
  Receive Date: 20181119
  Receipt Date: 20181119
  Transmission Date: 20190205
  Serious: Yes (Other)
  Sender: FDA-Public Use
  Company Number: PHHY2018BR018530

PATIENT
  Age: 84 Year
  Sex: Female
  Weight: 58 kg

DRUGS (7)
  1. ACLASTA [Suspect]
     Active Substance: ZOLEDRONIC ACID
     Indication: OSTEOPOROSIS
     Dosage: 1 DF (5MG/100ML), Q12MO
     Route: 042
     Dates: start: 20180126, end: 20180126
  2. TECNOFER [Concomitant]
     Indication: HAEMOLYTIC ANAEMIA
     Dosage: 1050 MG, QD (STARTED 1 WEEK AGO)
     Route: 048
  3. CALCIUM [Concomitant]
     Active Substance: CALCIUM
     Dosage: 1 DF, QD (STARTED 15 YEARS AGO)
     Route: 048
  4. FOLIC ACID. [Concomitant]
     Active Substance: FOLIC ACID
     Indication: HAEMOLYTIC ANAEMIA
     Dosage: 5 MG, QD (STARTED TREATMENT 12 YEAR AGO)
     Route: 048
  5. COBAVITAL [Concomitant]
     Active Substance: COBAMAMIDE\CYPROHEPTADINE HYDROCHLORIDE
     Indication: HAEMOLYTIC ANAEMIA
     Dosage: 1 MG, QD (STARTED 1 WEEK AGO)
     Route: 048
  6. CALCIUM [Concomitant]
     Active Substance: CALCIUM
     Indication: OSTEOPOROSIS
     Dosage: 1250 MG, QD (STARTED MORE THAN 12 YEARS AGO)
     Route: 048
  7. AZATHIOPRINE. [Concomitant]
     Active Substance: AZATHIOPRINE
     Indication: HAEMOLYTIC ANAEMIA
     Dosage: 50 MG, QD (STARTED 12 YEARS AGO)
     Route: 048

REACTIONS (13)
  - Pain [Recovered/Resolved]
  - Femur fracture [Unknown]
  - Depression [Unknown]
  - Muscle atrophy [Unknown]
  - Eating disorder [Unknown]
  - Malaise [Recovering/Resolving]
  - Asthenia [Recovered/Resolved]
  - Aggression [Recovering/Resolving]
  - Myalgia [Unknown]
  - Blood pressure decreased [Recovered/Resolved]
  - Pain in extremity [Recovered/Resolved]
  - Neuralgia [Unknown]
  - Headache [Recovered/Resolved]

NARRATIVE: CASE EVENT DATE: 20180127
